FAERS Safety Report 25049363 (Version 2)
Quarter: 2025Q1

REPORT INFORMATION
  Report Type: Spontaneous
  Country: CH (occurrence: CH)
  Receive Date: 20250307
  Receipt Date: 20250312
  Transmission Date: 20250409
  Serious: Yes (Other)
  Sender: ROCHE
  Company Number: CH-ROCHE-10000217606

PATIENT
  Age: 65 Year
  Sex: Male

DRUGS (4)
  1. OCREVUS [Suspect]
     Active Substance: OCRELIZUMAB
     Indication: Primary progressive multiple sclerosis
     Route: 065
     Dates: start: 201605
  2. AMLODIPINE [Concomitant]
     Active Substance: AMLODIPINE BESYLATE
  3. LISINOPRIL [Concomitant]
     Active Substance: LISINOPRIL
  4. METOPROLOL SUCCINATE [Concomitant]
     Active Substance: METOPROLOL SUCCINATE

REACTIONS (6)
  - Paraparesis [Unknown]
  - Sensory disturbance [Unknown]
  - Hypertonic bladder [Unknown]
  - Detrusor sphincter dyssynergia [Unknown]
  - Lung neoplasm malignant [Unknown]
  - Aortic dissection [Unknown]

NARRATIVE: CASE EVENT DATE: 20220901
